FAERS Safety Report 6101219-4 (Version None)
Quarter: 2009Q1

REPORT INFORMATION
  Report Type: 
  Country: None (occurrence: None)
  Receive Date: 20090304
  Receipt Date: 20090225
  Transmission Date: 20090719
  Serious: Yes (Hospitalization)
  Sender: FDA-Public Use
  Company Number: JP-ALLERGAN-0902709US

PATIENT
  Sex: Female

DRUGS (10)
  1. BOTOX [Suspect]
     Indication: TORTICOLLIS
     Dosage: 50 IU, SINGLE
     Route: 030
     Dates: start: 20031208, end: 20031208
  2. BOTOX [Suspect]
     Dosage: 75 UNITS, SINGLE
     Route: 030
     Dates: start: 20040315, end: 20040315
  3. BOTOX [Suspect]
     Dosage: 100 UNITS, SINGLE
     Route: 030
     Dates: start: 20040621, end: 20040621
  4. TEGRETOL [Concomitant]
     Dosage: 300 MG, QD
     Route: 048
     Dates: start: 20031118, end: 20031229
  5. AKINETON [Concomitant]
     Indication: EXTRAPYRAMIDAL DISORDER
     Dosage: 3 MG, QD
     Route: 048
     Dates: start: 20031121, end: 20031125
  6. AKINETON [Concomitant]
     Dosage: 6 MG, QD
     Route: 048
     Dates: start: 20031126, end: 20031229
  7. TERNELIN [Concomitant]
     Indication: HYPERTONIA
     Dosage: 3 MG, QD
     Route: 048
     Dates: start: 20031126, end: 20031229
  8. MYONAL [Concomitant]
     Indication: HYPERTONIA
     Dosage: 150 MG, QD
     Route: 048
     Dates: start: 20031118, end: 20031125
  9. LUDIOMIL [Concomitant]
     Dosage: 30 MG, QD
     Route: 048
     Dates: start: 20031118, end: 20031125
  10. CARBIDOPA AND LEVODOPA [Concomitant]
     Indication: EXTRAPYRAMIDAL DISORDER
     Dosage: 150 MG, QD
     Route: 048
     Dates: start: 20031121, end: 20031125

REACTIONS (1)
  - FRACTURE [None]
